FAERS Safety Report 9418371 (Version 1)
Quarter: 2013Q3

REPORT INFORMATION
  Report Type: Spontaneous
  Country: US (occurrence: US)
  Receive Date: 20130725
  Receipt Date: 20130725
  Transmission Date: 20140515
  Serious: Yes (Other)
  Sender: FDA-Public Use
  Company Number: US-ROCHE-791836

PATIENT
  Sex: Male
  Weight: 53.57 kg

DRUGS (2)
  1. ACCUTANE [Suspect]
     Indication: ACNE
     Route: 065
     Dates: start: 200208, end: 200211
  2. AMNESTEEM [Suspect]
     Indication: ACNE
     Route: 065
     Dates: start: 200212, end: 200301

REACTIONS (5)
  - Crohn^s disease [Unknown]
  - Inflammatory bowel disease [Unknown]
  - Emotional distress [Not Recovered/Not Resolved]
  - Intestinal haemorrhage [Unknown]
  - Intestinal obstruction [Unknown]
